FAERS Safety Report 4554874-4 (Version None)
Quarter: 2005Q1

REPORT INFORMATION
  Report Type: 
  Country: None (occurrence: None)
  Receive Date: 20050111
  Receipt Date: 20050104
  Transmission Date: 20050727
  Serious: Yes (Life-Threatening)
  Sender: FDA-Public Use
  Company Number: 2004-02301

PATIENT
  Age: 53 Year
  Sex: Male

DRUGS (2)
  1. IMMUCYST (BCG - IT (CONNAUGHT)), AVENTIS PASTEUR LTD., C1342AB, D3 [Suspect]
     Indication: BLADDER CANCER
     Dosage: 81.0 MG
     Route: 043
     Dates: start: 20030819
  2. OFLOCET [Concomitant]

REACTIONS (1)
  - BOVINE TUBERCULOSIS [None]
